FAERS Safety Report 22131971 (Version 1)
Quarter: 2023Q1

REPORT INFORMATION
  Report Type: Spontaneous
  Country: US (occurrence: US)
  Receive Date: 20230323
  Receipt Date: 20230323
  Transmission Date: 20230417
  Serious: No
  Sender: FDA-Public Use
  Company Number: US-BIOGENIDEC-2013BI044090

PATIENT
  Age: 16 Year
  Sex: Female

DRUGS (1)
  1. TYSABRI [Suspect]
     Active Substance: NATALIZUMAB
     Indication: Multiple sclerosis
     Route: 050
     Dates: start: 20130118

REACTIONS (4)
  - Off label use [Recovered/Resolved]
  - Poor venous access [Unknown]
  - Stress [Unknown]
  - Central venous catheterisation [Not Recovered/Not Resolved]

NARRATIVE: CASE EVENT DATE: 20130510
